FAERS Safety Report 4612085-8 (Version None)
Quarter: 2005Q2

REPORT INFORMATION
  Report Type: 
  Country: None (occurrence: None)
  Receive Date: 20050308
  Receipt Date: 20041228
  Transmission Date: 20051028
  Serious: Yes (Other)
  Sender: FDA-Public Use
  Company Number: 2004UW26184

PATIENT
  Age: 83 Year
  Sex: Female
  Weight: 63.502 kg

DRUGS (5)
  1. CRESTOR [Suspect]
     Indication: BLOOD CHOLESTEROL INCREASED
     Dosage: 5 MG PO
     Route: 048
     Dates: start: 20041223, end: 20041224
  2. NORVASC [Concomitant]
  3. ALTACE [Concomitant]
  4. ACTOS [Concomitant]
  5. OCUVITE LUTEIN [Concomitant]

REACTIONS (4)
  - EPISTAXIS [None]
  - MUSCLE SPASMS [None]
  - PRURITUS [None]
  - VISUAL ACUITY REDUCED [None]
